FAERS Safety Report 8572755-6 (Version None)
Quarter: 2012Q3

REPORT INFORMATION
  Report Type: 
  Country: None (occurrence: None)
  Receive Date: 20120806
  Receipt Date: 20120801
  Transmission Date: 20120928
  Serious: Yes (Other)
  Sender: FDA-Public Use
  Company Number: IT-PFIZER INC-2012187933

PATIENT
  Age: 66 Year
  Sex: Male

DRUGS (6)
  1. VFEND [Suspect]
     Indication: CANDIDIASIS
     Dosage: 200 MG, 2X/DAY
     Route: 048
     Dates: start: 20120730, end: 20120731
  2. LANSOPRAZOLE [Concomitant]
  3. ALLOPURINOL [Concomitant]
  4. CALCIUM CARBONATE [Concomitant]
  5. FERROUS SULFATE TAB [Concomitant]
  6. BISOPROLOL FUMARATE [Concomitant]

REACTIONS (3)
  - HALLUCINATIONS, MIXED [None]
  - DISORIENTATION [None]
  - CONFUSIONAL STATE [None]
